FAERS Safety Report 5113761-3 (Version None)
Quarter: 2006Q3

REPORT INFORMATION
  Report Type: 
  Country: None (occurrence: None)
  Receive Date: 20060921
  Receipt Date: 20060921
  Transmission Date: 20061208
  Serious: No
  Sender: FDA-Public Use
  Company Number: None

PATIENT
  Sex: Female
  Weight: 54.4316 kg

DRUGS (1)
  1. ZELPAR 1.25 SAMPLE [Suspect]
     Indication: PARKINSON'S DISEASE
     Dosage: 1.25 MG 1 A DAY
     Dates: start: 20060725

REACTIONS (1)
  - DEAFNESS TRANSITORY [None]
